FAERS Safety Report 14517774 (Version 1)
Quarter: 2018Q1

REPORT INFORMATION
  Report Type: Spontaneous
  Country: US (occurrence: US)
  Receive Date: 20180209
  Receipt Date: 20180209
  Transmission Date: 20180509
  Serious: No
  Sender: FDA-Public Use
  Company Number: None

PATIENT
  Age: 35 Year
  Sex: Female

DRUGS (1)
  1. BOTOX [Suspect]
     Active Substance: ONABOTULINUMTOXINA
     Indication: MIGRAINE
     Dosage: 155 UNITS Q90DAYS IM
     Route: 030
     Dates: start: 20170809

REACTIONS (2)
  - Bronchitis [None]
  - Asthma [None]

NARRATIVE: CASE EVENT DATE: 20171101
